FAERS Safety Report 8956907 (Version 1)
Quarter: 2012Q4

REPORT INFORMATION
  Report Type: Spontaneous
  Country: US (occurrence: None)
  Receive Date: 20121130
  Receipt Date: 20121130
  Transmission Date: 20130627
  Serious: Yes (Other)
  Sender: FDA-Public Use
  Company Number: PR-AE12-000511

PATIENT
  Age: 45 Year
  Sex: Male

DRUGS (2)
  1. BC HEADACHE POWDER [Suspect]
     Indication: HEADACHE
     Dosage: 20 + years
     Route: 048
  2. BC HEADACHE POWDER [Suspect]
     Indication: NECK PAIN
     Dosage: 20 + years
     Route: 048

REACTIONS (5)
  - Abdominal discomfort [None]
  - Renal pain [None]
  - Constipation [None]
  - Diarrhoea [None]
  - Drug dependence [None]
